APPROVED DRUG PRODUCT: AMPHOTERICIN B
Active Ingredient: AMPHOTERICIN B
Strength: 50MG/VIAL
Dosage Form/Route: INJECTABLE, LIPOSOMAL;INJECTION
Application: A214010 | Product #001 | TE Code: AB
Applicant: EUGIA PHARMA SPECIALITIES LTD
Approved: Nov 17, 2022 | RLD: No | RS: No | Type: RX